FAERS Safety Report 18050672 (Version 1)
Quarter: 2020Q3

REPORT INFORMATION
  Report Type: Spontaneous
  Country: US (occurrence: US)
  Receive Date: 20200721
  Receipt Date: 20200721
  Transmission Date: 20201103
  Serious: No
  Sender: FDA-Public Use
  Company Number: US-BAUSCH-BL-2020-015504

PATIENT
  Age: 56 Year
  Sex: Male

DRUGS (4)
  1. KETOTIFEN EYE DROPS [Suspect]
     Active Substance: KETOTIFEN FUMARATE
     Indication: EYE INFECTION
     Route: 047
  2. OFLOXACIN OPHTHALMIC [Suspect]
     Active Substance: OFLOXACIN
     Indication: EYE INFECTION
     Route: 047
     Dates: end: 2020
  3. NEOMYCIN AND POLYMYXIN B SULFATES AND DEXAMETHASONE OPHTHALMIC OINT [Suspect]
     Active Substance: DEXAMETHASONE\NEOMYCIN\POLYMYXIN B SULFATE
     Indication: EYE INFECTION
     Dosage: 1 APPLICATION IN BOTH EYES AT BEDTIME, APPROX. 8 TO 9 MONTHS AGO FROM THE REPORT?APPROX 5 WEEKS AGO
     Route: 047
     Dates: start: 2019, end: 202004
  4. FML [Suspect]
     Active Substance: FLUOROMETHOLONE
     Indication: EYE INFECTION
     Route: 047

REACTIONS (6)
  - Product delivery mechanism issue [Unknown]
  - Product availability issue [Unknown]
  - Vision blurred [Not Recovered/Not Resolved]
  - Eye irritation [Not Recovered/Not Resolved]
  - Therapy interrupted [Unknown]
  - Eye discharge [Not Recovered/Not Resolved]

NARRATIVE: CASE EVENT DATE: 2019
